FAERS Safety Report 5858332-6 (Version None)
Quarter: 2008Q3

REPORT INFORMATION
  Report Type: 
  Country: None (occurrence: None)
  Receive Date: 20080826
  Receipt Date: 20080819
  Transmission Date: 20090109
  Serious: Yes (Other)
  Sender: FDA-Public Use
  Company Number: PHEH2008US07265

PATIENT
  Sex: Female

DRUGS (1)
  1. ZELNORM [Suspect]
     Dosage: UNK
     Dates: start: 20051201

REACTIONS (4)
  - ABASIA [None]
  - ALOPECIA [None]
  - CONTUSION [None]
  - NAUSEA [None]
